FAERS Safety Report 20280928 (Version 1)
Quarter: 2022Q1

REPORT INFORMATION
  Report Type: Spontaneous
  Country: RU (occurrence: RU)
  Receive Date: 20220103
  Receipt Date: 20220103
  Transmission Date: 20220424
  Serious: Yes (Other)
  Sender: FDA-Public Use
  Company Number: None

PATIENT
  Age: 37 Year
  Sex: Male

DRUGS (2)
  1. NOVORAPID [Suspect]
     Active Substance: INSULIN ASPART
     Indication: Type 1 diabetes mellitus
     Dosage: 20 IU, TID (20 IU (9 A.M.) + 20 IU (2 P.M.) + 20 IU (6 P.M.))
     Route: 058
     Dates: start: 20200116, end: 20200216
  2. TOUJEO [Suspect]
     Active Substance: INSULIN GLARGINE
     Indication: Type 1 diabetes mellitus
     Dosage: 40 IU, QD (EVENING)
     Route: 058
     Dates: start: 20200116, end: 20200216

REACTIONS (3)
  - Burning sensation [Recovering/Resolving]
  - Burning sensation [Recovering/Resolving]
  - Blood glucose fluctuation [Recovering/Resolving]
